FAERS Safety Report 17872006 (Version 2)
Quarter: 2021Q1

REPORT INFORMATION
  Report Type: Report from Study
  Country: CA (occurrence: CA)
  Receive Date: 20200608
  Receipt Date: 20210328
  Transmission Date: 20210419
  Serious: Yes (Hospitalization)
  Sender: FDA-Public Use
  Company Number: CA-JNJFOC-20200601312

PATIENT
  Age: 62 Year
  Sex: Male

DRUGS (23)
  1. PREDNISONE. [Suspect]
     Active Substance: PREDNISONE
     Indication: PROSTATE CANCER METASTATIC
     Route: 065
     Dates: end: 20200423
  2. NACL [Concomitant]
     Active Substance: SODIUM CHLORIDE
     Indication: SEPSIS
     Route: 042
     Dates: start: 20180717, end: 20180718
  3. HYDROMORPHONE [Concomitant]
     Active Substance: HYDROMORPHONE
     Dosage: CR CAPSULE
     Route: 065
     Dates: start: 201806, end: 201807
  4. GENTAMYCINE                        /00047101/ [Concomitant]
     Active Substance: GENTAMICIN
     Route: 065
     Dates: start: 201908, end: 201908
  5. NACL [Concomitant]
     Active Substance: SODIUM CHLORIDE
     Indication: HYPONATRAEMIA
     Route: 065
     Dates: start: 20200203, end: 20200204
  6. ABIRATERONE ACETATE. [Suspect]
     Active Substance: ABIRATERONE ACETATE
     Indication: PROSTATE CANCER METASTATIC
     Route: 048
     Dates: start: 201805
  7. LEUPROLIDE                         /00726901/ [Suspect]
     Active Substance: LEUPROLIDE
     Indication: PROSTATE CANCER METASTATIC
     Route: 065
     Dates: start: 201703, end: 20191008
  8. DEXAMETHASONE. [Suspect]
     Active Substance: DEXAMETHASONE
     Indication: PROSTATE CANCER METASTATIC
     Route: 065
     Dates: start: 20200423
  9. AZITHROMYCIN ANHYDROUS. [Concomitant]
     Active Substance: AZITHROMYCIN ANHYDROUS
     Indication: SEPSIS
     Route: 065
     Dates: start: 20180717, end: 20180718
  10. VANCOMYCIN [Concomitant]
     Active Substance: VANCOMYCIN
     Route: 065
     Dates: start: 201908, end: 201908
  11. HYDROMORPHONE [Concomitant]
     Active Substance: HYDROMORPHONE
     Route: 065
     Dates: start: 201806, end: 201806
  12. CEFAZOLIN [Concomitant]
     Active Substance: CEFAZOLIN
     Indication: SEPSIS
     Route: 065
     Dates: start: 20190125, end: 20190223
  13. ANCEF [Concomitant]
     Active Substance: CEFAZOLIN SODIUM
     Indication: SEPSIS
     Route: 065
     Dates: start: 201908, end: 20190914
  14. ONDANSETRON [Concomitant]
     Active Substance: ONDANSETRON
     Route: 065
     Dates: start: 20200228, end: 20200229
  15. METHADONE [Concomitant]
     Active Substance: METHADONE HYDROCHLORIDE
     Route: 065
     Dates: start: 201909, end: 201909
  16. COLCHICINE. [Concomitant]
     Active Substance: COLCHICINE
     Route: 065
     Dates: start: 20190712
  17. LEUPROLIDE                         /00726901/ [Suspect]
     Active Substance: LEUPROLIDE
     Route: 065
     Dates: start: 20191008
  18. PIPERACILLIN. [Concomitant]
     Active Substance: PIPERACILLIN SODIUM
     Indication: SEPSIS
     Route: 065
     Dates: start: 20180717, end: 20180717
  19. CEFAZOLIN [Concomitant]
     Active Substance: CEFAZOLIN
     Route: 065
     Dates: start: 201908, end: 201909
  20. RADIUM RA 223 DICHLORIDE [Suspect]
     Active Substance: RADIUM RA-223 DICHLORIDE
     Indication: PROSTATE CANCER METASTATIC
     Route: 065
     Dates: start: 20180607, end: 20180613
  21. VANCOMYCIN [Concomitant]
     Active Substance: VANCOMYCIN
     Indication: SEPSIS
     Route: 065
     Dates: start: 20180717, end: 20180718
  22. GENTAMYCINE                        /00047101/ [Concomitant]
     Active Substance: GENTAMICIN
     Indication: SEPSIS
     Route: 065
     Dates: start: 20190125, end: 201901
  23. VANCOMYCIN [Concomitant]
     Active Substance: VANCOMYCIN
     Route: 065
     Dates: start: 20190125, end: 20190208

REACTIONS (1)
  - Pathological fracture [Recovering/Resolving]

NARRATIVE: CASE EVENT DATE: 20200514
